FAERS Safety Report 7760848-2 (Version None)
Quarter: 2011Q3

REPORT INFORMATION
  Report Type: 
  Country: None (occurrence: None)
  Receive Date: 20110919
  Receipt Date: 20110914
  Transmission Date: 20111222
  Serious: Yes (Hospitalization, Other)
  Sender: FDA-Public Use
  Company Number: FR-PFIZER INC-2011216520

PATIENT
  Age: 37 Year
  Sex: Female

DRUGS (2)
  1. LYRICA [Suspect]
     Dosage: 300 MG, 2X/DAY
  2. LYRICA [Suspect]
     Dosage: 200 MG, 2X/DAY

REACTIONS (3)
  - ABDOMINAL PAIN [None]
  - HYPONATRAEMIA [None]
  - CONSTIPATION [None]
